FAERS Safety Report 24554265 (Version 1)
Quarter: 2024Q4

REPORT INFORMATION
  Report Type: Spontaneous
  Country: EG (occurrence: EG)
  Receive Date: 20241028
  Receipt Date: 20241028
  Transmission Date: 20250114
  Serious: Yes (Other)
  Sender: HIKMA
  Company Number: EG-HIKMA PHARMACEUTICALS USA INC.-EG-H14001-24-09884

PATIENT
  Age: 54 Year
  Sex: Female

DRUGS (6)
  1. CARBOPLATIN [Suspect]
     Active Substance: CARBOPLATIN
     Dosage: 750 MILLIGRAM, 3W,  5TH CYCLE (DAY 1)
     Route: 041
     Dates: start: 20240717
  2. CARBOPLATIN [Suspect]
     Active Substance: CARBOPLATIN
     Indication: Breast cancer metastatic
     Dosage: 750 MILLIGRAM/D1/3W
     Route: 041
  3. CARBOPLATIN [Suspect]
     Active Substance: CARBOPLATIN
     Dosage: 750 MILLIGRAMS, 3W, 5TH CYCLE (DAY 8)
     Route: 041
     Dates: start: 20240724
  4. PACLITAXEL [Suspect]
     Active Substance: PACLITAXEL
     Dosage: 152 MILLIGRAM, 3W, 5TH CYCLE (DAY 1)
     Route: 041
     Dates: start: 20240717
  5. PACLITAXEL [Suspect]
     Active Substance: PACLITAXEL
     Dosage: 152 MILLIGRAM, 3W, 5TH CYCLE (DAY 8)
     Route: 041
     Dates: start: 20240724
  6. PACLITAXEL [Suspect]
     Active Substance: PACLITAXEL
     Indication: Breast cancer metastatic
     Dosage: 152 MILLIGRAM, 3W/DAY 1,8,15
     Route: 041

REACTIONS (4)
  - Neutropenia [Recovered/Resolved]
  - White blood cell count decreased [Recovered/Resolved]
  - Abdominal rigidity [Not Recovered/Not Resolved]
  - Toothache [Not Recovered/Not Resolved]

NARRATIVE: CASE EVENT DATE: 20240718
